FAERS Safety Report 9057919 (Version 1)
Quarter: 2013Q1

REPORT INFORMATION
  Report Type: Spontaneous
  Country: GB (occurrence: GB)
  Receive Date: 20130210
  Receipt Date: 20130210
  Transmission Date: 20140127
  Serious: Yes (Other)
  Sender: FDA-Public Use
  Company Number: GB-TEVA-383950ISR

PATIENT
  Age: 78 Year
  Sex: Male

DRUGS (7)
  1. BACLOFEN [Suspect]
     Indication: SCOLIOSIS
     Dosage: 10MG  FREQUENCY UKNOWN
     Route: 065
     Dates: start: 2009, end: 2012
  2. BACLOFEN [Suspect]
     Indication: SCOLIOSIS
     Dosage: 10MG, FREQUENCY UKNOWN
     Route: 065
     Dates: start: 2012, end: 20130106
  3. BACLOFEN [Suspect]
     Indication: SCOLIOSIS
     Dosage: 10MG, FREQUENCY UKNOWN
     Route: 065
     Dates: start: 20130107, end: 20130114
  4. DIGOXIN [Concomitant]
     Indication: PRODUCT USED FOR UNKNOWN INDICATION
     Dosage: DOSE AND FREQUENCY UNKNOWN
     Route: 065
  5. WARFARIN [Concomitant]
     Indication: PRODUCT USED FOR UNKNOWN INDICATION
     Dosage: DOSE AND FREQUENCY UNKNOWN
     Route: 065
  6. SIMVASTATIN [Concomitant]
     Indication: PRODUCT USED FOR UNKNOWN INDICATION
     Dosage: DOSE AND FREQUENCY UNKNOWN
     Route: 065
  7. FUROSEMIDE [Concomitant]
     Indication: PRODUCT USED FOR UNKNOWN INDICATION
     Dosage: DOSE AND FREQUENCY UNKNOWN
     Route: 065

REACTIONS (9)
  - Suicidal ideation [Not Recovered/Not Resolved]
  - Expired drug administered [Not Recovered/Not Resolved]
  - Headache [Not Recovered/Not Resolved]
  - Body temperature fluctuation [Not Recovered/Not Resolved]
  - Heart rate increased [Not Recovered/Not Resolved]
  - Hyperhidrosis [Not Recovered/Not Resolved]
  - Fatigue [Not Recovered/Not Resolved]
  - Tearfulness [Not Recovered/Not Resolved]
  - Insomnia [Not Recovered/Not Resolved]
